FAERS Safety Report 15736968 (Version 3)
Quarter: 2019Q1

REPORT INFORMATION
  Report Type: Report from Study
  Country: US (occurrence: US)
  Receive Date: 20181218
  Receipt Date: 20190108
  Transmission Date: 20190417
  Serious: Yes (Other)
  Sender: FDA-Public Use
  Company Number: US-GILEAD-2018-0380329

PATIENT
  Age: 61 Year
  Sex: Male
  Weight: 71.2 kg

DRUGS (4)
  1. HYDROXYZINE [Concomitant]
     Active Substance: HYDROXYZINE HYDROCHLORIDE
  2. VARENICLINE [Concomitant]
     Active Substance: VARENICLINE
  3. AMLODIPINE [Concomitant]
     Active Substance: AMLODIPINE BESYLATE
  4. SOFOSBUVIR W/VELPATASVIR [Suspect]
     Active Substance: SOFOSBUVIR\VELPATASVIR
     Indication: CHRONIC HEPATITIS C
     Dosage: 1 DF, QD
     Route: 048
     Dates: start: 20181118, end: 20181212

REACTIONS (5)
  - Myalgia [Recovered/Resolved]
  - Angioedema [Recovered/Resolved]
  - Swelling face [Not Recovered/Not Resolved]
  - Musculoskeletal stiffness [Unknown]
  - Muscle spasms [Not Recovered/Not Resolved]

NARRATIVE: CASE EVENT DATE: 201811
